FAERS Safety Report 6753496-4 (Version None)
Quarter: 2010Q2

REPORT INFORMATION
  Report Type: 
  Country: None (occurrence: None)
  Receive Date: 20100528
  Receipt Date: 20100517
  Transmission Date: 20101027
  Serious: Yes (Other)
  Sender: FDA-Public Use
  Company Number: 1-22664965

PATIENT
  Age: 57 Year
  Sex: Female

DRUGS (2)
  1. DICLOFENAC SODIUM [Suspect]
     Indication: JUVENILE ARTHRITIS
     Dosage: 75 MG 2X/DAY, ORAL
     Route: 048
  2. PREDNISOLONE [Concomitant]

REACTIONS (7)
  - COLONIC STENOSIS [None]
  - GASTRITIS [None]
  - GASTROINTESTINAL INFLAMMATION [None]
  - IRON DEFICIENCY ANAEMIA [None]
  - LARGE INTESTINAL ULCER [None]
  - MEAN CELL VOLUME DECREASED [None]
  - MUCOSAL ULCERATION [None]
